FAERS Safety Report 8377528 (Version 2)
Quarter: 2013Q1

REPORT INFORMATION
  Report Type: Report from Study
  Country: US (occurrence: US)
  Receive Date: 20120128
  Receipt Date: 20130129
  Transmission Date: 20140127
  Serious: No
  Sender: FDA-Public Use
  Company Number: US-ABBOTT-11P-163-0838964-00

PATIENT
  Age: 62 None
  Sex: Female
  Weight: 77.18 kg

DRUGS (10)
  1. HUMIRA 40 MG/0.8 ML PEN [Suspect]
     Indication: PSORIATIC ARTHROPATHY
     Dates: start: 201102
  2. HORMONES [Suspect]
     Indication: HORMONE REPLACEMENT THERAPY
  3. ESTRADIOL [Concomitant]
     Indication: PRODUCT USED FOR UNKNOWN INDICATION
     Dosage: 1 MG - FREQUENCY NOT REPORTED
  4. LEVOTHYROXINE [Concomitant]
     Indication: PRODUCT USED FOR UNKNOWN INDICATION
     Dosage: 88 MICROGRAMS - FREQUENCY NOT REPORTED
  5. PROZAC [Concomitant]
     Indication: DEPRESSION
     Dosage: 20 MG TID
  6. FLEXERIL [Concomitant]
     Indication: INSOMNIA
     Dosage: 20 MG AT HS
  7. IMITREX [Concomitant]
     Indication: MIGRAINE
     Dosage: 50 MG PRN
  8. ESTRIC PLUS [Concomitant]
     Indication: HEADACHE
     Dosage: NOT REPORTED
  9. TRIAMCINALONE [Concomitant]
     Indication: PSORIASIS
  10. PROPANOLOL [Concomitant]
     Indication: MIGRAINE

REACTIONS (8)
  - Weight increased [Not Recovered/Not Resolved]
  - Nail disorder [Not Recovered/Not Resolved]
  - Nail disorder [Not Recovered/Not Resolved]
  - Local swelling [Not Recovered/Not Resolved]
  - Hot flush [Recovering/Resolving]
  - Dyspnoea [Not Recovered/Not Resolved]
  - Fatigue [Not Recovered/Not Resolved]
  - Nail disorder [Not Recovered/Not Resolved]
